FAERS Safety Report 12561385 (Version 1)
Quarter: 2016Q3

REPORT INFORMATION
  Report Type: Spontaneous
  Country: US (occurrence: US)
  Receive Date: 20160715
  Receipt Date: 20160715
  Transmission Date: 20161109
  Serious: Yes (Hospitalization)
  Sender: FDA-Public Use
  Company Number: US-PFIZER INC-2016340189

PATIENT
  Age: 61 Year
  Sex: Female
  Weight: 65 kg

DRUGS (1)
  1. VFEND [Suspect]
     Active Substance: VORICONAZOLE
     Indication: PNEUMONIA FUNGAL
     Dosage: 200 MG, 2X/DAY (200MG EVERY 12 HOURS)
     Route: 048

REACTIONS (3)
  - Pneumonia [Not Recovered/Not Resolved]
  - Intentional product use issue [Unknown]
  - Asthma [Not Recovered/Not Resolved]
